FAERS Safety Report 18862715 (Version 1)
Quarter: 2021Q1

REPORT INFORMATION
  Report Type: Spontaneous
  Country: US (occurrence: US)
  Receive Date: 20210209
  Receipt Date: 20210209
  Transmission Date: 20210420
  Serious: Yes (Other)
  Sender: FDA-Public Use
  Company Number: US-PURDUE-USA-2020-0158067

PATIENT
  Sex: Female

DRUGS (1)
  1. BUTRANS [Suspect]
     Active Substance: BUPRENORPHINE
     Indication: PAIN
     Dosage: UNK
     Route: 062

REACTIONS (8)
  - Overdose [Unknown]
  - Psychological trauma [Unknown]
  - Sleep disorder [Unknown]
  - Claustrophobia [Unknown]
  - Pain [Unknown]
  - Anxiety disorder [Unknown]
  - Drug dependence [Unknown]
  - Panic disorder [Unknown]
